FAERS Safety Report 24610432 (Version 3)
Quarter: 2025Q2

REPORT INFORMATION
  Report Type: Spontaneous
  Country: US (occurrence: US)
  Receive Date: 20241112
  Receipt Date: 20250620
  Transmission Date: 20250716
  Serious: No
  Sender: SUNOVION
  Company Number: US-SMPA-2024SPA004664AA

PATIENT

DRUGS (1)
  1. ORGOVYX [Suspect]
     Active Substance: RELUGOLIX
     Indication: Prostate cancer
     Dosage: 120 MG, QD
     Route: 048

REACTIONS (7)
  - Feeling abnormal [Unknown]
  - Muscle spasms [Unknown]
  - Muscle atrophy [Unknown]
  - Weight decreased [Unknown]
  - Abdominal pain upper [Unknown]
  - Weight increased [Unknown]
  - Arthritis [Unknown]
